FAERS Safety Report 6813394-4 (Version None)
Quarter: 2010Q2

REPORT INFORMATION
  Report Type: 
  Country: None (occurrence: None)
  Receive Date: 20100628
  Receipt Date: 20100617
  Transmission Date: 20101027
  Serious: Yes (Other)
  Sender: FDA-Public Use
  Company Number: 2010US002246

PATIENT
  Sex: Male

DRUGS (2)
  1. LEXISCAN [Suspect]
     Indication: SCAN MYOCARDIAL PERFUSION
     Dosage: IV NOS
     Route: 042
     Dates: start: 20100616, end: 20100616
  2. ACE INHIBITOR NOS (FORMATION UNKNOWN) [Concomitant]

REACTIONS (1)
  - ANGIOEDEMA [None]
